FAERS Safety Report 17880408 (Version 4)
Quarter: 2024Q2

REPORT INFORMATION
  Report Type: Other
  Country: CA (occurrence: CA)
  Receive Date: 20200610
  Receipt Date: 20240521
  Transmission Date: 20240715
  Serious: Yes (Hospitalization, Disabling, Other)
  Sender: FDA-Public Use
  Company Number: CA-APOTEX-2020AP011691

PATIENT
  Sex: Female

DRUGS (19)
  1. TRAMADOL [Suspect]
     Active Substance: TRAMADOL\TRAMADOL HYDROCHLORIDE
     Indication: Product used for unknown indication
     Dosage: UNK
     Route: 065
  2. AMLODIPINE [Suspect]
     Active Substance: AMLODIPINE BESYLATE
     Indication: Product used for unknown indication
     Dosage: UNK
     Route: 065
  3. ESOMEPRAZOLE [Suspect]
     Active Substance: ESOMEPRAZOLE
     Indication: Product used for unknown indication
     Dosage: UNK
     Route: 048
  4. FOLIC ACID [Suspect]
     Active Substance: FOLIC ACID
     Indication: Product used for unknown indication
     Dosage: UNK
     Route: 065
  5. METHOTREXATE [Suspect]
     Active Substance: METHOTREXATE
     Indication: Product used for unknown indication
     Dosage: UNK
     Route: 065
  6. OXYCODONE [Suspect]
     Active Substance: OXYCODONE\OXYCODONE HYDROCHLORIDE
     Indication: Product used for unknown indication
     Dosage: UNK
     Route: 065
  7. CLARITHROMYCIN [Suspect]
     Active Substance: CLARITHROMYCIN
     Indication: Product used for unknown indication
     Dosage: UNK
     Route: 065
  8. PENICILLIN [Suspect]
     Active Substance: PENICILLIN
     Indication: Product used for unknown indication
     Dosage: UNK
     Route: 065
  9. CODEINE [Suspect]
     Active Substance: CODEINE
     Indication: Product used for unknown indication
     Dosage: UNK
     Route: 065
  10. ENBREL [Suspect]
     Active Substance: BENZYL ALCOHOL\ETANERCEPT
     Indication: Product used for unknown indication
     Dosage: UNK
     Route: 065
  11. MACROBID [Suspect]
     Active Substance: NITROFURANTOIN\NITROFURANTOIN MONOHYDRATE
     Indication: Product used for unknown indication
     Dosage: UNK
     Route: 065
  12. MAGNESIUM HYDROXIDE [Suspect]
     Active Substance: MAGNESIUM HYDROXIDE
     Indication: Product used for unknown indication
     Dosage: UNK
     Route: 065
  13. ERGOCALCIFEROL [Suspect]
     Active Substance: ERGOCALCIFEROL
     Indication: Product used for unknown indication
     Dosage: UNK
     Route: 065
  14. ALUMINUM HYDROXIDE\DIMETHICONE\MAGNESIUM [Suspect]
     Active Substance: ALUMINUM HYDROXIDE\DIMETHICONE\MAGNESIUM
     Indication: Product used for unknown indication
     Dosage: UNK
     Route: 065
  15. ERGOCALCIFEROL [Suspect]
     Active Substance: ERGOCALCIFEROL
     Indication: Product used for unknown indication
     Dosage: UNK
     Route: 065
  16. PENICILLIN G [Suspect]
     Active Substance: PENICILLIN G
     Indication: Product used for unknown indication
     Dosage: UNK
     Route: 065
  17. ESOMEPRAZOLE SODIUM [Suspect]
     Active Substance: ESOMEPRAZOLE SODIUM
     Indication: Product used for unknown indication
     Dosage: UNK
     Route: 065
  18. ESOMEPRAZOLE MAGNESIUM [Suspect]
     Active Substance: ESOMEPRAZOLE MAGNESIUM
     Indication: Product used for unknown indication
     Dosage: UNK
     Route: 048
  19. ALUMINUM HYDROXIDE [Suspect]
     Active Substance: ALUMINUM HYDROXIDE
     Indication: Product used for unknown indication
     Dosage: UNK
     Route: 065

REACTIONS (16)
  - Bipolar disorder [Unknown]
  - Injection site bruising [Unknown]
  - Blood creatinine increased [Unknown]
  - Feeling abnormal [Unknown]
  - Joint swelling [Unknown]
  - Musculoskeletal pain [Unknown]
  - Renal disorder [Unknown]
  - Alopecia [Unknown]
  - Fatigue [Unknown]
  - Pain [Unknown]
  - Hypertension [Unknown]
  - Rash [Unknown]
  - Abdominal pain upper [Unknown]
  - Somnolence [Unknown]
  - Nausea [Unknown]
  - Pruritus [Unknown]
